FAERS Safety Report 19945207 (Version 1)
Quarter: 2021Q4

REPORT INFORMATION
  Report Type: Spontaneous
  Country: CA (occurrence: CA)
  Receive Date: 20211012
  Receipt Date: 20211012
  Transmission Date: 20220303
  Serious: Yes (Death, Hospitalization, Other)
  Sender: FDA-Public Use
  Company Number: CA-AMGEN-CANSP2021153848

PATIENT

DRUGS (2)
  1. XGEVA [Suspect]
     Active Substance: DENOSUMAB
     Indication: Hormone-refractory prostate cancer
     Dosage: UNK
     Route: 065
  2. XGEVA [Suspect]
     Active Substance: DENOSUMAB
     Indication: Metastases to bone

REACTIONS (11)
  - Death [Fatal]
  - Renal impairment [Unknown]
  - Pathological fracture [Unknown]
  - Osteonecrosis of jaw [Unknown]
  - Metastases to bone [Unknown]
  - Spinal cord compression [Unknown]
  - Hypocalcaemia [Unknown]
  - Product dose omission issue [Unknown]
  - Hypercalcaemia [Unknown]
  - Disease progression [Unknown]
  - Off label use [Unknown]
